FAERS Safety Report 9157210 (Version 1)
Quarter: 2013Q1

REPORT INFORMATION
  Report Type: Spontaneous
  Country: BR (occurrence: BR)
  Receive Date: 20130312
  Receipt Date: 20130312
  Transmission Date: 20140127
  Serious: Yes (Other)
  Sender: FDA-Public Use
  Company Number: BR-SANOFI-AVENTIS-2013SA023124

PATIENT
  Age: 55 Year
  Sex: Female
  Weight: 78 kg

DRUGS (3)
  1. LANTUS [Suspect]
     Indication: DIABETES MELLITUS
     Route: 058
  2. AUTOPEN 24 [Concomitant]
     Indication: DEVICE THERAPY
     Dosage: START DATE: ABOUT 3 YEARS AGO?BLUE
  3. OMEPRAZOLE [Concomitant]
     Indication: GASTRIC DISORDER
     Dosage: START DATE: ABOUT 5 YEARS AGO
     Route: 048

REACTIONS (7)
  - Osteonecrosis [Not Recovered/Not Resolved]
  - Peroneal muscular atrophy [Unknown]
  - Fall [Unknown]
  - Local swelling [Unknown]
  - Limb injury [Unknown]
  - Secretion discharge [Unknown]
  - Local swelling [Not Recovered/Not Resolved]
